FAERS Safety Report 14187117 (Version 7)
Quarter: 2018Q4

REPORT INFORMATION
  Report Type: Spontaneous
  Country: US (occurrence: US)
  Receive Date: 20171114
  Receipt Date: 20181030
  Transmission Date: 20190204
  Serious: No
  Sender: FDA-Public Use
  Company Number: US-PFIZER INC-2017488322

PATIENT
  Age: 67 Year
  Sex: Female

DRUGS (5)
  1. PERCOCET [Suspect]
     Active Substance: ACETAMINOPHEN\OXYCODONE HYDROCHLORIDE
     Dosage: UNK
  2. SAVELLA [Suspect]
     Active Substance: MILNACIPRAN HYDROCHLORIDE
     Dosage: UNK
  3. LYRICA [Suspect]
     Active Substance: PREGABALIN
     Dosage: 50 MG, (TAKE 1 TAB DAILY, EXCEPT MWF TAKE 2 TABS DAILY)
     Route: 048
  4. LYRICA [Suspect]
     Active Substance: PREGABALIN
     Dosage: 75 MG, ONE DAILY WITH AN EXTRA TAB AFTER DIALYSIS (MONDAY, WEDNESDAY, FRIDAY)
     Route: 048
  5. LYRICA [Suspect]
     Active Substance: PREGABALIN
     Dosage: 25 MG, DAILY WITH ONE ADDITIONAL TAB FOLLOWING DIALYSIS
     Route: 048

REACTIONS (1)
  - Drug hypersensitivity [Unknown]
